FAERS Safety Report 8336874-1 (Version None)
Quarter: 2012Q2

REPORT INFORMATION
  Report Type: 
  Country: None (occurrence: None)
  Receive Date: 20120504
  Receipt Date: 20110615
  Transmission Date: 20120825
  Serious: No
  Sender: FDA-Public Use
  Company Number: US-TEVA-2011002295

PATIENT
  Sex: Male
  Weight: 79.904 kg

DRUGS (1)
  1. NUVIGIL [Suspect]
     Indication: FATIGUE
     Dosage: 500 MILLIGRAM;
     Route: 048
     Dates: start: 20110506

REACTIONS (4)
  - DRUG PRESCRIBING ERROR [None]
  - APHTHOUS STOMATITIS [None]
  - URINE ODOUR ABNORMAL [None]
  - DIARRHOEA [None]
